FAERS Safety Report 20047358 (Version 2)
Quarter: 2021Q4

REPORT INFORMATION
  Report Type: Spontaneous
  Country: FR (occurrence: FR)
  Receive Date: 20211109
  Receipt Date: 20211124
  Transmission Date: 20220303
  Serious: Yes (Life-Threatening, Hospitalization, Other)
  Sender: FDA-Public Use
  Company Number: FR-MLMSERVICE-20211026-3184623-1

PATIENT
  Age: 60 Year
  Sex: Female

DRUGS (2)
  1. OXALIPLATIN [Suspect]
     Active Substance: OXALIPLATIN
     Indication: Metastases to peritoneum
     Dosage: 90 MILLIGRAM/SQ. METER
     Route: 065
     Dates: start: 2020, end: 2020
  2. OXALIPLATIN [Suspect]
     Active Substance: OXALIPLATIN
     Indication: Adenocarcinoma of colon

REACTIONS (6)
  - Acute respiratory distress syndrome [Recovered/Resolved]
  - Encapsulating peritoneal sclerosis [Recovering/Resolving]
  - Chemical peritonitis [Recovering/Resolving]
  - Atelectasis [Recovering/Resolving]
  - Drug hypersensitivity [Recovering/Resolving]
  - Interstitial lung disease [Recovering/Resolving]

NARRATIVE: CASE EVENT DATE: 20200101
